FAERS Safety Report 8519644-0 (Version None)
Quarter: 2012Q3

REPORT INFORMATION
  Report Type: 
  Country: None (occurrence: None)
  Receive Date: 20120719
  Receipt Date: 20120715
  Transmission Date: 20120928
  Serious: Yes (Death, Other)
  Sender: FDA-Public Use
  Company Number: US-AMGEN-USASP2012039585

PATIENT
  Age: 78 Year
  Sex: Female

DRUGS (13)
  1. CELEBREX [Concomitant]
     Dosage: UNK
  2. VIMOVO [Concomitant]
     Indication: INFLAMMATION
     Dosage: UNK
  3. EXELON [Concomitant]
     Dosage: UNK
  4. PHENERGAN [Concomitant]
     Indication: NAUSEA
     Dosage: UNK MG, UNK
  5. VICODIN [Concomitant]
     Indication: PAIN
     Dosage: UNK UNK, Q6H
  6. LISINOPRIL [Concomitant]
  7. VIMOVO [Concomitant]
     Indication: PAIN
  8. PROLIA [Suspect]
     Indication: OSTEOPOROSIS POSTMENOPAUSAL
     Dosage: 60 MG, UNK
  9. ASPIRIN [Concomitant]
     Dosage: UNK
  10. CALCIUM WITH VITAMIN D             /00944201/ [Concomitant]
  11. IMODIUM [Concomitant]
  12. OXYCODONE HCL [Concomitant]
     Dosage: UNK MG, UNK
  13. SIMVASTATIN [Concomitant]

REACTIONS (7)
  - FATIGUE [None]
  - FALL [None]
  - CONSTIPATION [None]
  - COMPRESSION FRACTURE [None]
  - DEATH [None]
  - MALNUTRITION [None]
  - GASTRITIS [None]
